FAERS Safety Report 8828944 (Version 1)
Quarter: 2012Q4

REPORT INFORMATION
  Report Type: 
  Country: BE (occurrence: BE)
  Receive Date: 20121009
  Receipt Date: 20121009
  Transmission Date: 20130627
  Serious: Yes (Hospitalization)
  Sender: FDA-Public Use
  Company Number: BE-009507513-2012SP024329

PATIENT
  Age: 59 Year
  Sex: Female

DRUGS (7)
  1. VICTRELIS [Suspect]
     Indication: HEPATITIS C
     Dosage: 2400 mg, QD
     Route: 048
     Dates: start: 20120221, end: 20120611
  2. REBETOL [Suspect]
     Indication: HEPATITIS C
     Dosage: 400 mg, QD
     Route: 048
     Dates: start: 20120124, end: 20120611
  3. PEG-INTRON [Suspect]
     Indication: HEPATITIS C
     Dosage: 120 ?g, QW
     Route: 065
     Dates: start: 20120124, end: 20120606
  4. PANTOMED (PANTOPRAZOLE SODIUM) [Concomitant]
     Indication: PRODUCT USED FOR UNKNOWN INDICATION
     Dosage: UNK
     Route: 065
     Dates: start: 20120221
  5. PRIMPERAN [Concomitant]
     Indication: PRODUCT USED FOR UNKNOWN INDICATION
     Dosage: UNK
     Route: 065
     Dates: start: 20120226
  6. SIPRALEXA [Concomitant]
     Indication: PRODUCT USED FOR UNKNOWN INDICATION
     Dosage: UNK
     Route: 065
     Dates: start: 20120419
  7. STILNOCT [Concomitant]
     Indication: PRODUCT USED FOR UNKNOWN INDICATION
     Dosage: UNK UNK, Unknown
     Route: 065
     Dates: start: 20120505

REACTIONS (3)
  - Asthenia [Unknown]
  - Decreased appetite [Unknown]
  - Anaemia [Recovered/Resolved]
